FAERS Safety Report 14611845 (Version 1)
Quarter: 2018Q1

REPORT INFORMATION
  Report Type: Spontaneous
  Country: US (occurrence: US)
  Receive Date: 20180308
  Receipt Date: 20180308
  Transmission Date: 20180509
  Serious: No
  Sender: FDA-Public Use
  Company Number: US-JNJFOC-20180224641

PATIENT
  Sex: Female

DRUGS (1)
  1. DURAGESIC [Suspect]
     Active Substance: FENTANYL
     Indication: PRODUCT USED FOR UNKNOWN INDICATION
     Route: 062

REACTIONS (7)
  - Eating disorder [Unknown]
  - Paraesthesia [Unknown]
  - Crying [Unknown]
  - Insomnia [Unknown]
  - Pain [Unknown]
  - Burning sensation [Unknown]
  - Hypoaesthesia [Unknown]
